FAERS Safety Report 9173944 (Version 1)
Quarter: 2013Q1

REPORT INFORMATION
  Report Type: Spontaneous
  Country: US (occurrence: None)
  Receive Date: 20130318
  Receipt Date: 20130318
  Transmission Date: 20140127
  Serious: Yes (Other)
  Sender: FDA-Public Use
  Company Number: None

PATIENT
  Age: 61 Year
  Sex: Female
  Weight: 61.69 kg

DRUGS (1)
  1. TOPIRAMATE [Suspect]
     Indication: MIGRAINE
     Dates: start: 20130312, end: 20130314

REACTIONS (7)
  - Anger [None]
  - Tremor [None]
  - Crying [None]
  - Depression [None]
  - Negative thoughts [None]
  - Pain in jaw [None]
  - Feeling abnormal [None]
